FAERS Safety Report 13923593 (Version 1)
Quarter: 2017Q3

REPORT INFORMATION
  Report Type: Spontaneous
  Country: US (occurrence: US)
  Receive Date: 20170830
  Receipt Date: 20170830
  Transmission Date: 20171127
  Serious: Yes (Hospitalization)
  Sender: FDA-Public Use
  Company Number: None

PATIENT
  Age: 54 Year
  Sex: Male
  Weight: 80.8 kg

DRUGS (2)
  1. SILDENAFIL. [Concomitant]
     Active Substance: SILDENAFIL
  2. NILOTINIB [Suspect]
     Active Substance: NILOTINIB
     Indication: CHRONIC MYELOID LEUKAEMIA
     Route: 048
     Dates: start: 20120701, end: 20170711

REACTIONS (6)
  - Hemiparesis [None]
  - Transient ischaemic attack [None]
  - Facial paralysis [None]
  - Cerebrovascular accident [None]
  - Cerebral infarction [None]
  - Dysarthria [None]

NARRATIVE: CASE EVENT DATE: 20170711
